FAERS Safety Report 19397300 (Version 1)
Quarter: 2021Q2

REPORT INFORMATION
  Report Type: Report from Study
  Country: DE (occurrence: DE)
  Receive Date: 20210609
  Receipt Date: 20210609
  Transmission Date: 20210717
  Serious: Yes (Death)
  Sender: FDA-Public Use
  Company Number: DE-INCYTE CORPORATION-2021IN004863

PATIENT

DRUGS (10)
  1. INCB018424 [Suspect]
     Active Substance: RUXOLITINIB
     Indication: PRIMARY MYELOFIBROSIS
     Dosage: 20 MG, PER DAY
     Route: 048
     Dates: start: 20180417
  2. CLOPIDOGREL [Concomitant]
     Active Substance: CLOPIDOGREL BISULFATE
     Indication: HYPERTENSION
     Dosage: 75 MG, QD
     Route: 065
     Dates: start: 20180220
  3. BISOPROLOL FUMARATE. [Concomitant]
     Active Substance: BISOPROLOL FUMARATE
     Indication: HYPERTENSION
     Dosage: 10 MG, QD
     Route: 065
     Dates: start: 20180220
  4. DEKRISTOL [Concomitant]
     Active Substance: CHOLECALCIFEROL
     Indication: VITAMIN D DEFICIENCY
     Dosage: 20.000 IU, PER DAY (EVERY 14 DAYS)
     Route: 065
     Dates: start: 20180220
  5. TOREM COR [Concomitant]
     Active Substance: TORSEMIDE
     Indication: CHRONIC KIDNEY DISEASE
     Dosage: 2.5 MG, PER DAY
     Route: 065
     Dates: start: 20180220
  6. BICANORM [Concomitant]
     Active Substance: SODIUM BICARBONATE
     Indication: RENAL FAILURE
     Dosage: 1, 2X PER DAY
     Route: 065
     Dates: start: 20180220
  7. ZANIPRESS [Concomitant]
     Active Substance: ENALAPRIL MALEATE\LERCANIDIPINE HYDROCHLORIDE
     Indication: HYPERTENSION
     Dosage: 20/10 MG, PER DAY
     Route: 065
     Dates: start: 20180220
  8. RESONIUM [Concomitant]
     Active Substance: SODIUM POLYSTYRENE SULFONATE
     Indication: HYPERKALAEMIA
     Dosage: 15 G, PER DAY
     Route: 065
     Dates: start: 20180703
  9. ATORVASTATIN [Concomitant]
     Active Substance: ATORVASTATIN
     Indication: BLOOD CHOLESTEROL
     Dosage: 10 MG, QD
     Route: 065
     Dates: start: 20180220
  10. ALLOPURINOL. [Concomitant]
     Active Substance: ALLOPURINOL
     Indication: HYPERTENSION
     Dosage: 100 MG, QD
     Route: 065
     Dates: start: 20180220

REACTIONS (2)
  - Atrial fibrillation [Fatal]
  - Cardiac failure [Fatal]

NARRATIVE: CASE EVENT DATE: 20201113
